FAERS Safety Report 16524047 (Version 2)
Quarter: 2019Q3

REPORT INFORMATION
  Report Type: Spontaneous
  Country: AE (occurrence: AE)
  Receive Date: 20190702
  Receipt Date: 20190918
  Transmission Date: 20191004
  Serious: Yes (Other)
  Sender: FDA-Public Use
  Company Number: AE-BAUSCH-BL-2019-018836

PATIENT
  Age: 11 Year
  Sex: Male
  Weight: 50 kg

DRUGS (2)
  1. BESIVANCE [Suspect]
     Active Substance: BESIFLOXACIN
     Indication: INFECTION
  2. BESIVANCE [Suspect]
     Active Substance: BESIFLOXACIN
     Indication: ULCERATIVE KERATITIS
     Route: 047

REACTIONS (1)
  - Punctate keratitis [Unknown]

NARRATIVE: CASE EVENT DATE: 20190627
